FAERS Safety Report 4767545-6 (Version None)
Quarter: 2005Q3

REPORT INFORMATION
  Report Type: 
  Country: None (occurrence: None)
  Receive Date: 20050913
  Receipt Date: 20050311
  Transmission Date: 20060218
  Serious: Yes (Hospitalization, Other)
  Sender: FDA-Public Use
  Company Number: US-MERCK-0503USA02579

PATIENT
  Age: 58 Year
  Sex: Male
  Weight: 95 kg

DRUGS (14)
  1. VIOXX [Suspect]
     Indication: ARTHRITIS
     Route: 048
     Dates: start: 19991101, end: 20040401
  2. MELATONIN [Concomitant]
     Route: 065
  3. ELAVIL [Concomitant]
     Route: 065
  4. BIAXIN [Concomitant]
     Route: 065
  5. FLONASE [Concomitant]
     Route: 065
  6. FLOVENT [Concomitant]
     Route: 065
  7. HYDROCODONE HYDROCHLORIDE [Concomitant]
     Route: 065
  8. VICODIN [Concomitant]
     Route: 065
  9. ATIVAN [Concomitant]
     Route: 065
  10. NEURONTIN [Concomitant]
     Route: 065
  11. PAXIL [Concomitant]
     Route: 065
  12. TRADON [Concomitant]
     Route: 065
  13. PROSCAR [Concomitant]
     Route: 065
  14. PRAVACHOL [Concomitant]
     Route: 065

REACTIONS (64)
  - ANAEMIA [None]
  - ARTHRALGIA [None]
  - BACK PAIN [None]
  - BENIGN PROSTATIC HYPERPLASIA [None]
  - BLOOD CHOLESTEROL INCREASED [None]
  - BLOOD CREATININE ABNORMAL [None]
  - BRONCHITIS [None]
  - BRONCHITIS ACUTE [None]
  - BUNDLE BRANCH BLOCK [None]
  - BUNDLE BRANCH BLOCK RIGHT [None]
  - CARDIAC FAILURE CONGESTIVE [None]
  - CHEST PAIN [None]
  - CHRONIC OBSTRUCTIVE PULMONARY DISEASE [None]
  - COLONIC POLYP [None]
  - CONSTIPATION [None]
  - CORONARY ARTERY ATHEROSCLEROSIS [None]
  - CORONARY ARTERY RESTENOSIS [None]
  - DIZZINESS [None]
  - DRUG HYPERSENSITIVITY [None]
  - ELECTROLYTE IMBALANCE [None]
  - EPIDERMAL NAEVUS [None]
  - FIBULA FRACTURE [None]
  - FLUID RETENTION [None]
  - GASTRIC ULCER HAEMORRHAGE [None]
  - HAEMATURIA [None]
  - HAEMORRHOIDS [None]
  - HYPERKALAEMIA [None]
  - HYPERTENSION [None]
  - HYPOKALAEMIA [None]
  - HYPONATRAEMIA [None]
  - HYPOTENSION [None]
  - HYPOVOLAEMIA [None]
  - HYPOXIA [None]
  - INAPPROPRIATE ANTIDIURETIC HORMONE SECRETION [None]
  - INSOMNIA [None]
  - ISCHAEMIC CARDIOMYOPATHY [None]
  - LIVER FUNCTION TEST ABNORMAL [None]
  - MALAISE [None]
  - MELANOSIS COLI [None]
  - METABOLIC ACIDOSIS [None]
  - MITRAL VALVE INCOMPETENCE [None]
  - MUSCULOSKELETAL DISCOMFORT [None]
  - MYALGIA [None]
  - MYOCARDIAL INFARCTION [None]
  - NERVOUSNESS [None]
  - OEDEMA [None]
  - PAIN [None]
  - PAIN IN EXTREMITY [None]
  - PHOTOSENSITIVITY REACTION [None]
  - PNEUMONIA [None]
  - PRESENILE DEMENTIA [None]
  - PROSTATITIS [None]
  - PROTEIN TOTAL INCREASED [None]
  - PYREXIA [None]
  - RENAL FAILURE [None]
  - RENAL FAILURE ACUTE [None]
  - RENAL FAILURE CHRONIC [None]
  - RENAL PAIN [None]
  - SMALL INTESTINAL OBSTRUCTION [None]
  - SPINAL COMPRESSION FRACTURE [None]
  - SPINAL OSTEOARTHRITIS [None]
  - SYNCOPE [None]
  - TARDIVE DYSKINESIA [None]
  - URINARY TRACT OBSTRUCTION [None]
